FAERS Safety Report 9440041 (Version 2)
Quarter: 2013Q4

REPORT INFORMATION
  Report Type: Spontaneous
  Country: GB (occurrence: GB)
  Receive Date: 20130805
  Receipt Date: 20131117
  Transmission Date: 20140711
  Serious: Yes (Congenital Anomaly)
  Sender: FDA-Public Use
  Company Number: GB-MYLANLABS-2013S1016314

PATIENT
  Sex: 0

DRUGS (2)
  1. GABAPENTIN [Suspect]
     Route: 064
     Dates: start: 200905
  2. REBIF [Suspect]
     Route: 064
     Dates: start: 201205, end: 201303

REACTIONS (5)
  - Transposition of the great vessels [Not Recovered/Not Resolved]
  - Congenital cardiovascular anomaly [Not Recovered/Not Resolved]
  - Ventricular septal defect [Not Recovered/Not Resolved]
  - Foetal cardiac disorder [Not Recovered/Not Resolved]
  - Exposure during pregnancy [Not Recovered/Not Resolved]
